FAERS Safety Report 4791052-8 (Version None)
Quarter: 2005Q4

REPORT INFORMATION
  Report Type: 
  Country: None (occurrence: None)
  Receive Date: 20051005
  Receipt Date: 20050906
  Transmission Date: 20060501
  Serious: Yes (Hospitalization, Disabling)
  Sender: FDA-Public Use
  Company Number: ALMO2005041

PATIENT
  Age: 39 Year
  Sex: Female

DRUGS (1)
  1. AXERT [Suspect]
     Indication: MIGRAINE
     Dosage: 12.5 MG DAILY
     Dates: start: 20050724, end: 20050725

REACTIONS (11)
  - BLINDNESS [None]
  - BLINDNESS TRANSIENT [None]
  - CAROTID ARTERY DISEASE [None]
  - CEREBRAL ISCHAEMIA [None]
  - CEREBROVASCULAR ACCIDENT [None]
  - CEREBROVASCULAR DISORDER [None]
  - CEREBROVASCULAR SPASM [None]
  - CONFUSIONAL STATE [None]
  - EYE MOVEMENT DISORDER [None]
  - HEADACHE [None]
  - LETHARGY [None]
